FAERS Safety Report 12859878 (Version 2)
Quarter: 2016Q4

REPORT INFORMATION
  Report Type: Report from Study
  Country: PT (occurrence: PT)
  Receive Date: 20161018
  Receipt Date: 20161023
  Transmission Date: 20170207
  Serious: Yes (Life-Threatening, Other)
  Sender: FDA-Public Use
  Company Number: PT-B.I. PHARMACEUTICALS,INC./RIDGEFIELD-2016-BI-47900BI

PATIENT
  Age: 76 Year
  Sex: Female

DRUGS (17)
  1. OMEPRAZOL [Concomitant]
     Active Substance: OMEPRAZOLE
     Indication: PROPHYLAXIS
     Route: 065
     Dates: start: 20120419, end: 20120521
  2. LYRICA [Concomitant]
     Active Substance: PREGABALIN
     Indication: SACROILIITIS
     Route: 065
     Dates: start: 20120601
  3. MIRTAZAPINE. [Concomitant]
     Active Substance: MIRTAZAPINE
     Dosage: STRENGTH: 15 MG
     Route: 065
     Dates: start: 20150223
  4. BLINDED TRAJENTA [Suspect]
     Active Substance: LINAGLIPTIN
     Indication: TYPE 2 DIABETES MELLITUS
     Route: 048
     Dates: start: 20120125
  5. FILOTEMPO [Concomitant]
     Indication: ASTHMA
     Route: 065
  6. OMEPRAZOL [Concomitant]
     Active Substance: OMEPRAZOLE
     Indication: DYSPEPSIA
     Route: 065
     Dates: start: 20131104
  7. VOLTAREN [Concomitant]
     Active Substance: DICLOFENAC SODIUM
     Indication: SACROILIITIS
     Dosage: RETARD
     Route: 065
     Dates: start: 20120601
  8. MIRTAZAPINE. [Concomitant]
     Active Substance: MIRTAZAPINE
     Route: 065
     Dates: start: 20140109, end: 20150223
  9. DIOVAN [Concomitant]
     Active Substance: VALSARTAN
     Indication: HYPERTENSION
     Route: 065
     Dates: start: 20120110
  10. MAGNESONA [Concomitant]
     Indication: SACROILIITIS
     Route: 065
     Dates: start: 20120416
  11. TWYNSTA [Concomitant]
     Active Substance: AMLODIPINE BESYLATE\TELMISARTAN
     Indication: HYPERTENSION
     Route: 065
     Dates: start: 20150227
  12. TATION [Concomitant]
     Indication: HYPERTENSION
     Route: 065
     Dates: start: 20150227
  13. VOLTAREN [Concomitant]
     Active Substance: DICLOFENAC SODIUM
     Indication: PAIN
  14. FLURBIPROFEN. [Concomitant]
     Active Substance: FLURBIPROFEN
     Indication: SACROILIITIS
     Route: 065
     Dates: start: 20120127
  15. MIRTAZAPINE. [Concomitant]
     Active Substance: MIRTAZAPINE
     Indication: DEPRESSION
     Route: 065
     Dates: start: 20130921, end: 20131112
  16. OMEPRAZOL [Concomitant]
     Active Substance: OMEPRAZOLE
     Route: 065
     Dates: start: 20141010
  17. SERTRALINE [Concomitant]
     Active Substance: SERTRALINE HYDROCHLORIDE
     Indication: DEPRESSION
     Route: 065
     Dates: start: 20150223

REACTIONS (1)
  - Deep vein thrombosis [Not Recovered/Not Resolved]

NARRATIVE: CASE EVENT DATE: 20160620
